FAERS Safety Report 17301904 (Version 4)
Quarter: 2020Q2

REPORT INFORMATION
  Report Type: Report from Study
  Country: US (occurrence: US)
  Receive Date: 20200122
  Receipt Date: 20200414
  Transmission Date: 20200713
  Serious: Yes (Other)
  Sender: FDA-Public Use
  Company Number: US-GLAXOSMITHKLINE-US2019TSO230415

PATIENT
  Sex: Female
  Weight: 63.69 kg

DRUGS (2)
  1. NIRAPARIB [Suspect]
     Active Substance: NIRAPARIB
     Indication: MALIGNANT PERITONEAL NEOPLASM
     Dosage: 200 MG, QD IN THE EVENING WITHOUT FOOD
     Route: 048
  2. NIRAPARIB [Suspect]
     Active Substance: NIRAPARIB
     Dosage: 100 MG, QD
     Dates: start: 20191122

REACTIONS (17)
  - Insomnia [Not Recovered/Not Resolved]
  - Blood creatinine increased [Unknown]
  - Red blood cell count decreased [Unknown]
  - Nausea [Unknown]
  - Asthenia [Unknown]
  - Drug ineffective [Unknown]
  - Transfusion [Unknown]
  - Blood glucose increased [Unknown]
  - Anaemia [Not Recovered/Not Resolved]
  - Glomerular filtration rate decreased [Unknown]
  - Constipation [Not Recovered/Not Resolved]
  - Low density lipoprotein increased [Unknown]
  - Platelet count decreased [Unknown]
  - White blood cell count decreased [Unknown]
  - Blood urea increased [Unknown]
  - Haemoglobin decreased [Unknown]
  - Fatigue [Not Recovered/Not Resolved]
